FAERS Safety Report 13723622 (Version 1)
Quarter: 2017Q3

REPORT INFORMATION
  Report Type: Spontaneous
  Country: US (occurrence: US)
  Receive Date: 20170706
  Receipt Date: 20170706
  Transmission Date: 20171127
  Serious: No
  Sender: FDA-Public Use
  Company Number: US-JNJFOC-20160920664

PATIENT
  Age: 69 Year
  Sex: Female
  Weight: 61.24 kg

DRUGS (2)
  1. IMODIUM MULTI-SYMPTOM RELIEF [Suspect]
     Active Substance: DIMETHICONE\LOPERAMIDE HYDROCHLORIDE
     Indication: DIARRHOEA
     Dosage: TOOK ONE CAPLET WITH FIRST STOOL, 2 CAPLETS ON SECOND STOOL AND THEN 1 CAPLET ON NEXT STOOL.
     Route: 048
     Dates: start: 20160918, end: 20160918
  2. IMODIUM MULTI-SYMPTOM RELIEF [Suspect]
     Active Substance: DIMETHICONE\LOPERAMIDE HYDROCHLORIDE
     Indication: MUSCLE SPASMS
     Dosage: TOOK ONE CAPLET WITH FIRST STOOL, 2 CAPLETS ON SECOND STOOL AND THEN 1 CAPLET ON NEXT STOOL.
     Route: 048
     Dates: start: 20160918, end: 20160918

REACTIONS (2)
  - Drug ineffective [Unknown]
  - Product packaging issue [Unknown]
